FAERS Safety Report 5918943-6 (Version None)
Quarter: 2008Q4

REPORT INFORMATION
  Report Type: 
  Country: None (occurrence: None)
  Receive Date: 20081015
  Receipt Date: 20081003
  Transmission Date: 20090506
  Serious: Yes (Hospitalization)
  Sender: FDA-Public Use
  Company Number: US-NOVOPROD-279620

PATIENT
  Sex: Female

DRUGS (3)
  1. NORDITROPIN NORDIFLEX [Suspect]
     Indication: HAEMODIALYSIS
     Dosage: 2.1 MG, QD
     Route: 058
     Dates: start: 20080502, end: 20080906
  2. NORDITROPIN NORDIFLEX [Suspect]
     Indication: RENAL FAILURE CHRONIC
  3. INSULIN [Concomitant]
     Indication: TYPE 1 DIABETES MELLITUS
     Dosage: 80 U, QD
     Route: 065
     Dates: start: 20071205

REACTIONS (1)
  - HYPOGLYCAEMIA [None]
